FAERS Safety Report 20024509 (Version 2)
Quarter: 2021Q4

REPORT INFORMATION
  Report Type: Spontaneous
  Country: US (occurrence: US)
  Receive Date: 20211102
  Receipt Date: 20211123
  Transmission Date: 20220304
  Serious: No
  Sender: FDA-Public Use
  Company Number: US-GILEAD-2021-0553670

PATIENT
  Sex: Male

DRUGS (4)
  1. EPCLUSA [Suspect]
     Active Substance: SOFOSBUVIR\VELPATASVIR
     Indication: Chronic hepatitis C
     Dosage: 1 DOSAGE FORM (400-100MG), QD
     Route: 048
  2. IBUPROFEN [Concomitant]
     Active Substance: IBUPROFEN
  3. OMEPRAZOLE [Concomitant]
     Active Substance: OMEPRAZOLE
  4. BENAZEPRIL HYDROCHLORIDE [Concomitant]
     Active Substance: BENAZEPRIL HYDROCHLORIDE

REACTIONS (2)
  - Irritability [Recovered/Resolved]
  - Headache [Not Recovered/Not Resolved]
